FAERS Safety Report 17951576 (Version 1)
Quarter: 2020Q2

REPORT INFORMATION
  Report Type: Report from Study
  Country: US (occurrence: US)
  Receive Date: 20200626
  Receipt Date: 20200626
  Transmission Date: 20200714
  Serious: Yes (Hospitalization, Other)
  Sender: FDA-Public Use
  Company Number: US-MYLANLABS-2020M1059101

PATIENT
  Age: 73 Year
  Sex: Male

DRUGS (2)
  1. DEXAMETHASONE. [Suspect]
     Active Substance: DEXAMETHASONE
     Indication: PLASMA CELL MYELOMA
     Dosage: 12 MILLIGRAM, QW
     Route: 048
  2. VELCADE [Suspect]
     Active Substance: BORTEZOMIB
     Indication: PLASMA CELL MYELOMA
     Dosage: 1 MILLIGRAM/SQ. METER
     Route: 058

REACTIONS (7)
  - Device related infection [Recovered/Resolved]
  - Osteomyelitis bacterial [Recovered/Resolved]
  - Pancytopenia [Recovered/Resolved]
  - Streptococcal infection [Recovered/Resolved]
  - Thrombocytopenia [Recovered/Resolved]
  - Enterobacter infection [Recovered/Resolved]
  - Intervertebral discitis [Recovered/Resolved]
